FAERS Safety Report 10044450 (Version 3)
Quarter: 2015Q4

REPORT INFORMATION
  Report Type: Spontaneous
  Country: FI (occurrence: FI)
  Receive Date: 20140328
  Receipt Date: 20151001
  Transmission Date: 20160304
  Serious: Yes (Other)
  Sender: FDA-Public Use
  Company Number: FI-AMGEN-FINSP2013023902

PATIENT
  Age: 63 Year
  Sex: Female

DRUGS (11)
  1. PROLIA [Suspect]
     Active Substance: DENOSUMAB
     Indication: OSTEOPOROSIS
     Dosage: 60 MG, Q6MO
     Route: 058
     Dates: start: 20120328
  2. IBUPROFEN. [Concomitant]
     Active Substance: IBUPROFEN
     Dosage: UNK
     Route: 065
  3. DEVISOL [Concomitant]
     Dosage: UNK
     Route: 065
  4. CALCICHEW [Concomitant]
     Active Substance: CALCIUM CARBONATE
  5. CALCICHEW [Concomitant]
     Active Substance: CALCIUM CARBONATE
     Dosage: UNK
     Route: 065
  6. CALCICHEW D3 FORTE [Concomitant]
     Active Substance: CALCIUM\CHOLECALCIFEROL
  7. VITAMIN C [Concomitant]
     Active Substance: ASCORBIC ACID
     Dosage: UNK
     Route: 065
  8. VITAMIN C [Concomitant]
     Active Substance: ASCORBIC ACID
  9. MULTIVITA PLUS [Concomitant]
     Dosage: UNK
     Route: 065
  10. MULTIVITA PLUS [Concomitant]
  11. DEVISOL [Concomitant]

REACTIONS (12)
  - Pulse abnormal [Unknown]
  - Chest discomfort [Unknown]
  - Feeling abnormal [Recovered/Resolved]
  - Dysphonia [Recovered/Resolved]
  - Arrhythmia [Unknown]
  - Nasopharyngitis [Unknown]
  - Respiratory tract infection [Unknown]
  - Oropharyngeal pain [Recovered/Resolved]
  - Stress [Unknown]
  - Influenza [Recovered/Resolved]
  - Fatigue [Unknown]
  - Feeling cold [Unknown]

NARRATIVE: CASE EVENT DATE: 201209
